FAERS Safety Report 17015617 (Version 2)
Quarter: 2021Q4

REPORT INFORMATION
  Report Type: Report from Study
  Country: BA (occurrence: None)
  Receive Date: 20191111
  Receipt Date: 20211116
  Transmission Date: 20220303
  Serious: Yes (Death)
  Sender: FDA-Public Use
  Company Number: BA-ROCHE-2465992

PATIENT
  Sex: Female

DRUGS (1)
  1. ATEZOLIZUMAB [Suspect]
     Active Substance: ATEZOLIZUMAB
     Indication: Glioblastoma
     Dosage: MOST RECENT DOSE ON 31/MAY/2019
     Route: 041
     Dates: start: 20181212

REACTIONS (1)
  - Death [Fatal]
